FAERS Safety Report 5371754-5 (Version None)
Quarter: 2007Q2

REPORT INFORMATION
  Report Type: 
  Country: None (occurrence: None)
  Receive Date: 20070627
  Receipt Date: 20070618
  Transmission Date: 20071010
  Serious: Yes (Hospitalization, Other)
  Sender: FDA-Public Use
  Company Number: AU-AMGEN-US229765

PATIENT
  Sex: Male
  Weight: 90 kg

DRUGS (4)
  1. ARANESP [Suspect]
     Indication: DIALYSIS
     Route: 058
     Dates: start: 20060905, end: 20070516
  2. LASIX [Concomitant]
     Dates: start: 20040101
  3. SLOW-K [Concomitant]
  4. MIXTARD HUMAN 70/30 [Concomitant]
     Route: 058

REACTIONS (2)
  - CANDIDIASIS [None]
  - DERMATITIS ALLERGIC [None]
